FAERS Safety Report 5152988-1 (Version None)
Quarter: 2006Q4

REPORT INFORMATION
  Report Type: 
  Country: None (occurrence: None)
  Receive Date: 20061115
  Receipt Date: 20061115
  Transmission Date: 20070319
  Serious: No
  Sender: FDA-Public Use
  Company Number: None

PATIENT
  Age: 30 Year
  Sex: Female

DRUGS (2)
  1. JUNEL FE 1.5/30 [Suspect]
     Dosage: TABLETS  PACKAGE OF 28 - BLISTER PACK
  2. JUNEL 1/20 [Suspect]
     Dosage: TABLETS  PACKAGE OF 28 - BLISTER PACK

REACTIONS (2)
  - DRUG DISPENSING ERROR [None]
  - MEDICATION ERROR [None]
